FAERS Safety Report 19579970 (Version 1)
Quarter: 2021Q3

REPORT INFORMATION
  Report Type: Report from Study
  Country: ES (occurrence: ES)
  Receive Date: 20210719
  Receipt Date: 20210719
  Transmission Date: 20211014
  Serious: Yes (Hospitalization, Other)
  Sender: FDA-Public Use
  Company Number: ES-TAKEDA-2021TUS044785

PATIENT
  Age: 9 Year
  Sex: Male

DRUGS (1)
  1. IDURSULFASE [Suspect]
     Active Substance: IDURSULFASE
     Indication: MUCOPOLYSACCHARIDOSIS II
     Dosage: 0.5 MILLIGRAM/KILOGRAM, Q2WEEKS
     Route: 042
     Dates: start: 20180130

REACTIONS (1)
  - Ventriculo-peritoneal shunt [Recovered/Resolved]

NARRATIVE: CASE EVENT DATE: 20200323
